FAERS Safety Report 8503718-4 (Version None)
Quarter: 2012Q3

REPORT INFORMATION
  Report Type: 
  Country: None (occurrence: None)
  Receive Date: 20120711
  Receipt Date: 20120709
  Transmission Date: 20120928
  Serious: Yes (Hospitalization, Other)
  Sender: FDA-Public Use
  Company Number: US-TEVA-347352USA

PATIENT
  Sex: Male

DRUGS (3)
  1. NATALIZUMAB [Concomitant]
     Dosage: INFUSIONS
  2. BACLOFEN [Suspect]
     Indication: MUSCLE SPASMS
     Dosage: 40 MILLIGRAM;
     Dates: start: 20080101
  3. TIZANIDINE HYDROCHLORIDE [Concomitant]

REACTIONS (9)
  - BLOOD ALCOHOL INCREASED [None]
  - SUICIDAL IDEATION [None]
  - LOSS OF CONSCIOUSNESS [None]
  - INTENTIONAL OVERDOSE [None]
  - NERVOUS SYSTEM DISORDER [None]
  - CONVULSION [None]
  - DYSPNOEA [None]
  - SUICIDE ATTEMPT [None]
  - BLISTER [None]
